FAERS Safety Report 24194054 (Version 1)
Quarter: 2024Q3

REPORT INFORMATION
  Report Type: Spontaneous
  Country: US (occurrence: US)
  Receive Date: 20240809
  Receipt Date: 20240809
  Transmission Date: 20241016
  Serious: Yes (Hospitalization)
  Sender: LUPIN
  Company Number: US-LUPIN HEALTHCARE (UK) LIMITED-2024-07702

PATIENT
  Age: 73 Year
  Sex: Female
  Weight: 69.9 kg

DRUGS (7)
  1. AMLODIPINE [Suspect]
     Active Substance: AMLODIPINE BESYLATE
     Indication: Product used for unknown indication
     Dosage: 10 MG, QD
     Route: 048
  2. AMLODIPINE [Suspect]
     Active Substance: AMLODIPINE BESYLATE
     Dosage: 70 MG (ACCIDENTAL INGESTED (OVERDOSE))
     Route: 048
  3. MEMANTINE [Suspect]
     Active Substance: MEMANTINE
     Indication: Dementia
     Dosage: THE PATIENT ACCIDENTALLY INGESTED 1 WEEKS OF DRUG (OVERDOSE)
     Route: 048
  4. ATORVASTATIN CALCIUM [Suspect]
     Active Substance: ATORVASTATIN CALCIUM
     Indication: Product used for unknown indication
     Dosage: THE PATIENT ACCIDENTALLY INGESTED 1 WEEKS OF DRUG (OVERDOSE)
     Route: 048
  5. ESCITALOPRAM [Suspect]
     Active Substance: ESCITALOPRAM OXALATE
     Indication: Product used for unknown indication
     Dosage: THE PATIENT ACCIDENTALLY INGESTED 1 WEEKS OF DRUG (OVERDOSE)
     Route: 048
  6. APIXABAN [Suspect]
     Active Substance: APIXABAN
     Indication: Product used for unknown indication
     Dosage: THE PATIENT ACCIDENTALLY INGESTED 1 WEEKS OF DRUG (OVERDOSE)
     Route: 048
  7. ANASTROZOLE [Suspect]
     Active Substance: ANASTROZOLE
     Indication: Breast cancer
     Dosage: THE PATIENT ACCIDENTALLY INGESTED 1 WEEKS OF DRUG (OVERDOSE)
     Route: 048

REACTIONS (4)
  - Toxicity to various agents [Unknown]
  - Hypotension [Recovering/Resolving]
  - Bradycardia [Recovering/Resolving]
  - Accidental overdose [Unknown]
